FAERS Safety Report 9109817 (Version 2)
Quarter: 2013Q2

REPORT INFORMATION
  Report Type: Spontaneous
  Country: IT (occurrence: IT)
  Receive Date: 20130222
  Receipt Date: 20130408
  Transmission Date: 20140414
  Serious: Yes (Hospitalization)
  Sender: FDA-Public Use
  Company Number: IT-PFIZER INC-2013065946

PATIENT
  Age: 68 Year
  Sex: Female

DRUGS (6)
  1. HALCION [Suspect]
     Indication: INSOMNIA
     Dosage: 250 UG, 1X/DAY
     Route: 048
     Dates: start: 20130123
  2. LEXOTAN [Concomitant]
     Dosage: UNK GTT, UNK
  3. LASITONE [Concomitant]
     Dosage: UNK DF, UNK
  4. EFFERALGAN [Concomitant]
     Dosage: UNK MG, UNK
  5. LASIX [Concomitant]
     Dosage: UNK MG, UNK
  6. LOPRESOR [Concomitant]
     Dosage: UNK MG, UNK

REACTIONS (1)
  - Sopor [Recovering/Resolving]
